FAERS Safety Report 6065182-7 (Version None)
Quarter: 2009Q1

REPORT INFORMATION
  Report Type: 
  Country: None (occurrence: None)
  Receive Date: 20090204
  Receipt Date: 20090130
  Transmission Date: 20090719
  Serious: Yes (Life-Threatening, Hospitalization)
  Sender: FDA-Public Use
  Company Number: ES-BRISTOL-MYERS SQUIBB COMPANY-14488555

PATIENT
  Age: 70 Year
  Sex: Female

DRUGS (2)
  1. SPRYCEL [Suspect]
     Indication: BLAST CRISIS IN MYELOGENOUS LEUKAEMIA
     Route: 048
  2. ANTIHISTAMINE DRUGS [Concomitant]

REACTIONS (5)
  - DIARRHOEA [None]
  - HYPERTENSIVE CRISIS [None]
  - PLEURAL EFFUSION [None]
  - RASH [None]
  - VOMITING [None]
